FAERS Safety Report 10050345 (Version 1)
Quarter: 2014Q2

REPORT INFORMATION
  Report Type: Spontaneous
  Country: US (occurrence: US)
  Receive Date: 20140401
  Receipt Date: 20140401
  Transmission Date: 20141212
  Serious: Yes (Hospitalization, Other)
  Sender: FDA-Public Use
  Company Number: US-ASTRAZENECA-2014SE20782

PATIENT
  Age: 74 Year
  Sex: Female
  Weight: 95.3 kg

DRUGS (14)
  1. SYMBICORT [Suspect]
     Indication: ASTHMA
     Dosage: 160/4.5 TWO PUFFS BID
     Route: 055
     Dates: start: 2012, end: 20140321
  2. LISINOPRIL [Suspect]
     Indication: HYPERTENSION
     Route: 048
  3. OMEPRAZOLE [Suspect]
     Indication: GASTROOESOPHAGEAL REFLUX DISEASE
     Route: 048
     Dates: start: 2013
  4. OMEPRAZOLE [Suspect]
     Indication: GASTRIC ULCER
     Route: 048
     Dates: start: 2013
  5. CELEBREX [Suspect]
     Indication: RHEUMATOID ARTHRITIS
  6. DULXAETENIDR [Concomitant]
     Indication: RHEUMATOID ARTHRITIS
  7. CENLAFAXENA ER [Concomitant]
     Indication: STRESS
  8. CENLAFAXENA ER [Concomitant]
     Indication: SLEEP DISORDER
  9. MADHOTRAXADE [Concomitant]
     Indication: ARTHRITIS
  10. GABAPENTIN [Concomitant]
     Indication: BACK PAIN
  11. HYDROXCHLOROQUEN [Concomitant]
     Indication: RHEUMATOID ARTHRITIS
  12. FOLECACD [Concomitant]
     Indication: PELVIC FRACTURE
  13. HYDROCHLOROTHIACEDE [Concomitant]
     Indication: HYPERTENSION
  14. AMLODEPENE BESTLABI [Concomitant]
     Indication: HYPERTENSION

REACTIONS (9)
  - Pelvic fracture [Unknown]
  - Gastric ulcer [Unknown]
  - Fall [Unknown]
  - Dyspepsia [Unknown]
  - Sensation of foreign body [Not Recovered/Not Resolved]
  - Dysphonia [Not Recovered/Not Resolved]
  - Wheezing [Not Recovered/Not Resolved]
  - Cough [Not Recovered/Not Resolved]
  - Drug dose omission [Not Recovered/Not Resolved]
